FAERS Safety Report 10192195 (Version 1)
Quarter: 2014Q2

REPORT INFORMATION
  Report Type: Spontaneous
  Country: US (occurrence: None)
  Receive Date: 20140522
  Receipt Date: 20140522
  Transmission Date: 20141212
  Serious: Yes (Hospitalization)
  Sender: FDA-Public Use
  Company Number: None

PATIENT
  Age: 55 Year
  Sex: Male

DRUGS (1)
  1. HYDROMORPHONE [Suspect]
     Indication: PAIN
     Route: 048
     Dates: start: 20140116

REACTIONS (1)
  - Constipation [None]
